FAERS Safety Report 7219328-5 (Version None)
Quarter: 2011Q1

REPORT INFORMATION
  Report Type: 
  Country: None (occurrence: None)
  Receive Date: 20110111
  Receipt Date: 20110107
  Transmission Date: 20110831
  Serious: No
  Sender: FDA-Public Use
  Company Number: US-PFIZER INC-2011004995

PATIENT
  Sex: Male

DRUGS (1)
  1. CHANTIX [Suspect]
     Dosage: UNK
     Dates: start: 20100101

REACTIONS (5)
  - NAUSEA [None]
  - MOOD SWINGS [None]
  - PERSONALITY CHANGE [None]
  - INSOMNIA [None]
  - ABNORMAL DREAMS [None]
